FAERS Safety Report 9044892 (Version 1)
Quarter: 2013Q1

REPORT INFORMATION
  Report Type: Report from Study
  Country: JP (occurrence: JP)
  Receive Date: 20130130
  Receipt Date: 20130130
  Transmission Date: 20140127
  Serious: Yes (Other)
  Sender: FDA-Public Use
  Company Number: JP-GLAXOSMITHKLINE-B0859867A

PATIENT
  Age: 55 None
  Sex: Male

DRUGS (3)
  1. ZEFIX 100 [Suspect]
     Indication: HEPATIC CIRRHOSIS
     Dosage: 100MG PER DAY
     Route: 048
     Dates: start: 20060216
  2. ZANTAC [Concomitant]
     Indication: GASTRITIS
     Route: 048
  3. HEPSERA [Concomitant]
     Dosage: 10MG PER DAY
     Route: 048
     Dates: start: 20061005

REACTIONS (3)
  - Hepatitis B [Recovering/Resolving]
  - Aspartate aminotransferase increased [Recovering/Resolving]
  - HBV-DNA polymerase increased [Recovering/Resolving]
